FAERS Safety Report 14133199 (Version 1)
Quarter: 2017Q4

REPORT INFORMATION
  Report Type: Spontaneous
  Country: GB (occurrence: GB)
  Receive Date: 20171027
  Receipt Date: 20171027
  Transmission Date: 20180321
  Serious: Yes (Other)
  Sender: FDA-Public Use
  Company Number: GB-ACCORD-060171

PATIENT
  Age: 50 Year
  Sex: Male

DRUGS (1)
  1. TRAMADOL/TRAMADOL HYDROCHLORIDE [Suspect]
     Active Substance: TRAMADOL HYDROCHLORIDE

REACTIONS (2)
  - Suicide attempt [Unknown]
  - Intentional overdose [Unknown]
